FAERS Safety Report 9838583 (Version 1)
Quarter: 2013Q4

REPORT INFORMATION
  Report Type: Spontaneous
  Country: US (occurrence: None)
  Receive Date: 20131206
  Receipt Date: 20131206
  Transmission Date: 20140711
  Serious: Yes (Other)
  Sender: FDA-Public Use
  Company Number: 384813

PATIENT
  Age: 65 Year
  Sex: Female
  Weight: 70.3 kg

DRUGS (3)
  1. NOVOLOG [Suspect]
     Indication: TYPE 1 DIABETES MELLITUS
     Dosage: UNK, SUBCUTAN.-PUMP
     Route: 058
     Dates: end: 20130727
  2. LISINOPRIL(LISINOPRIL) [Concomitant]
  3. EVISTA(RALOXIFENE HYDROCHLORIDE) [Concomitant]

REACTIONS (1)
  - Diabetic ketoacidosis [None]
